FAERS Safety Report 10266013 (Version 2)
Quarter: 2014Q2

REPORT INFORMATION
  Report Type: Spontaneous
  Country: US (occurrence: US)
  Receive Date: 20140627
  Receipt Date: 20140627
  Transmission Date: 20141212
  Serious: Yes (Hospitalization)
  Sender: FDA-Public Use
  Company Number: US-BRISTOL-MYERS SQUIBB COMPANY-20918009

PATIENT
  Age: 56 Year
  Sex: Male

DRUGS (1)
  1. SPRYCEL [Suspect]
     Indication: CHRONIC MYELOID LEUKAEMIA
     Dosage: TABS?STOPPED ON 03MAY14?RESTRD ON 21MAY14
     Route: 048
     Dates: start: 20140416

REACTIONS (11)
  - Diverticular perforation [Recovering/Resolving]
  - Sunburn [Unknown]
  - Petechiae [Unknown]
  - Macule [Unknown]
  - Drug dose omission [Unknown]
  - Asthenia [Unknown]
  - Fatigue [Unknown]
  - Nausea [Unknown]
  - Depression [Unknown]
  - Back pain [Unknown]
  - Gout [Unknown]
